FAERS Safety Report 4587207-8 (Version None)
Quarter: 2005Q1

REPORT INFORMATION
  Report Type: 
  Country: None (occurrence: None)
  Receive Date: 20050218
  Receipt Date: 20041213
  Transmission Date: 20050727
  Serious: Yes (Hospitalization)
  Sender: FDA-Public Use
  Company Number: US-GLAXOSMITHKLINE-A0537316A

PATIENT
  Sex: Female

DRUGS (4)
  1. PAXIL [Suspect]
     Indication: GENERALISED ANXIETY DISORDER
     Dosage: 20MG PER DAY
     Route: 048
     Dates: start: 20041211, end: 20041213
  2. ALBUTEROL [Concomitant]
  3. PREDNISONE [Concomitant]
  4. SALMETEROL [Concomitant]

REACTIONS (12)
  - AGGRESSION [None]
  - ANGER [None]
  - ASTHMA [None]
  - COGNITIVE DISORDER [None]
  - CONDITION AGGRAVATED [None]
  - DELUSION [None]
  - DYSPNOEA [None]
  - PANIC REACTION [None]
  - PSYCHOTIC DISORDER [None]
  - SUICIDAL IDEATION [None]
  - THINKING ABNORMAL [None]
  - VERBAL ABUSE [None]
